FAERS Safety Report 6343557-6 (Version None)
Quarter: 2009Q3

REPORT INFORMATION
  Report Type: 
  Country: None (occurrence: None)
  Receive Date: 20090908
  Receipt Date: 20090828
  Transmission Date: 20100115
  Serious: Yes (Other)
  Sender: FDA-Public Use
  Company Number: CH-PFIZER INC-2009209276

PATIENT

DRUGS (1)
  1. FRAGMIN [Suspect]
     Dosage: 0.6 ML, 1X/DAY
     Route: 058
     Dates: start: 20090501, end: 20090101

REACTIONS (1)
  - MUSCLE SPASMS [None]
